FAERS Safety Report 8129582-3 (Version None)
Quarter: 2012Q1

REPORT INFORMATION
  Report Type: 
  Country: None (occurrence: None)
  Receive Date: 20120210
  Receipt Date: 20120203
  Transmission Date: 20120608
  Serious: Yes (Hospitalization, Congenital Anomaly)
  Sender: FDA-Public Use
  Company Number: US-GLAXOSMITHKLINE-A0953432A

PATIENT
  Sex: Male

DRUGS (4)
  1. NORVASC [Concomitant]
     Route: 064
  2. LOTREL [Concomitant]
  3. PAXIL [Suspect]
     Indication: DEPRESSION
     Dosage: 30MG PER DAY
     Route: 064
  4. INSULIN [Concomitant]
     Route: 064

REACTIONS (5)
  - MITRAL VALVE INCOMPETENCE [None]
  - AORTIC VALVE PROLAPSE [None]
  - VENTRICULAR SEPTAL DEFECT [None]
  - TRICUSPID VALVE INCOMPETENCE [None]
  - FOETAL EXPOSURE DURING PREGNANCY [None]
